FAERS Safety Report 7969535-9 (Version None)
Quarter: 2011Q4

REPORT INFORMATION
  Report Type: 
  Country: None (occurrence: None)
  Receive Date: 20111212
  Receipt Date: 20111207
  Transmission Date: 20120403
  Serious: No
  Sender: FDA-Public Use
  Company Number: US-PFIZER INC-2011299140

PATIENT
  Sex: Female
  Weight: 51.701 kg

DRUGS (3)
  1. PREMARIN [Suspect]
     Indication: MENOPAUSE
     Dosage: 0.625 MG, 1X/DAY
     Route: 048
     Dates: start: 20100901, end: 20110601
  2. ALPRAZOLAM [Concomitant]
     Indication: ANXIETY
     Dosage: UNK
  3. PAXIL [Concomitant]
     Indication: PANIC ATTACK
     Dosage: UNK

REACTIONS (3)
  - HOT FLUSH [None]
  - DYSPHONIA [None]
  - HYPERHIDROSIS [None]
